FAERS Safety Report 8589106-3 (Version None)
Quarter: 2012Q3

REPORT INFORMATION
  Report Type: 
  Country: None (occurrence: None)
  Receive Date: 20120813
  Receipt Date: 20120803
  Transmission Date: 20120928
  Serious: Yes (Death, Other)
  Sender: FDA-Public Use
  Company Number: JP-ASTELLAS-2012JP005952

PATIENT
  Sex: Male
  Weight: 32.7 kg

DRUGS (11)
  1. PROGRAF [Suspect]
     Indication: IMMUNOSUPPRESSANT DRUG THERAPY
     Route: 048
  2. DORIPENEM MONOHYDRATE [Concomitant]
     Indication: INFECTION
     Dosage: 0.5 G, TID
     Route: 041
     Dates: start: 20120615, end: 20120620
  3. TACROLIMUS [Suspect]
     Dosage: 1.5 MG, UID/QD
     Route: 048
     Dates: start: 20120704, end: 20120708
  4. CORTICOSTEROID NOS [Concomitant]
     Route: 065
  5. CELLCEPT [Concomitant]
     Route: 048
  6. TOBRACIN                           /00304201/ [Concomitant]
     Indication: INFECTION
     Dosage: 60 MG, BID
     Route: 055
     Dates: start: 20120615, end: 20120620
  7. ZYVOX [Concomitant]
     Indication: INFECTION
     Dosage: 600 MG, BID
     Route: 041
     Dates: start: 20120620, end: 20120626
  8. PROGRAF [Suspect]
     Dosage: 0.5 MG, BID
     Route: 048
     Dates: end: 20120620
  9. TACROLIMUS [Suspect]
     Indication: IMMUNOSUPPRESSANT DRUG THERAPY
     Dosage: 1 MG, UID/QD
     Route: 048
     Dates: start: 20120629, end: 20120703
  10. CIPROXAN                           /00697202/ [Concomitant]
     Indication: INFECTION
     Dosage: 300 MG, BID
     Route: 041
     Dates: start: 20120615, end: 20120617
  11. MEROPEN                            /01250501/ [Concomitant]
     Indication: INFECTION
     Dosage: 1 G, BID
     Route: 041
     Dates: start: 20120620, end: 20120628

REACTIONS (3)
  - LUNG INFECTION PSEUDOMONAL [None]
  - RENAL FAILURE ACUTE [None]
  - HEPATIC FAILURE [None]
